FAERS Safety Report 6507788-4 (Version None)
Quarter: 2009Q4

REPORT INFORMATION
  Report Type: 
  Country: None (occurrence: None)
  Receive Date: 20091221
  Receipt Date: 20091211
  Transmission Date: 20100525
  Serious: Yes (Hospitalization, Disabling)
  Sender: FDA-Public Use
  Company Number: US-MERCK-0908USA01337

PATIENT
  Age: 71 Year
  Sex: Female
  Weight: 53 kg

DRUGS (3)
  1. FOSAMAX [Suspect]
     Indication: OSTEOPOROSIS
     Route: 048
     Dates: start: 19990105, end: 20010701
  2. FOSAMAX [Suspect]
     Route: 048
     Dates: start: 20010801, end: 20080701
  3. SYNTHROID [Concomitant]
     Indication: THYROID DISORDER
     Route: 048
     Dates: start: 19900101

REACTIONS (34)
  - ANAEMIA [None]
  - ARTHRALGIA [None]
  - ASTHENIA [None]
  - BODY HEIGHT DECREASED [None]
  - BONE FRAGMENTATION [None]
  - BURSITIS [None]
  - CONSTIPATION [None]
  - DIABETES MELLITUS [None]
  - DIVERTICULITIS [None]
  - DYSPEPSIA [None]
  - FALL [None]
  - FEMUR FRACTURE [None]
  - FOREIGN BODY [None]
  - FRACTURE DELAYED UNION [None]
  - GASTROOESOPHAGEAL REFLUX DISEASE [None]
  - GIARDIASIS [None]
  - HAEMATOCHEZIA [None]
  - HAEMATURIA [None]
  - HAEMORRHAGIC ANAEMIA [None]
  - HYPERLIPIDAEMIA [None]
  - HYPERTENSION [None]
  - LEUKOCYTOSIS [None]
  - LOW TURNOVER OSTEOPATHY [None]
  - LYMPHADENOPATHY [None]
  - MULTIPLE INJURIES [None]
  - NECK MASS [None]
  - OESOPHAGITIS [None]
  - OSTEOPOROSIS [None]
  - SALIVARY GLAND ENLARGEMENT [None]
  - SKIN LACERATION [None]
  - SPINAL OSTEOARTHRITIS [None]
  - STRESS FRACTURE [None]
  - THYROID NEOPLASM [None]
  - URINARY TRACT INFECTION [None]
